FAERS Safety Report 4848120-1 (Version None)
Quarter: 2005Q4

REPORT INFORMATION
  Report Type: 
  Country: None (occurrence: None)
  Receive Date: 20051206
  Receipt Date: 20051206
  Transmission Date: 20060501
  Serious: No
  Sender: FDA-Public Use
  Company Number: None

PATIENT
  Sex: Female
  Weight: 68 kg

DRUGS (1)
  1. JUNEL FE 1.5/30 [Suspect]
     Indication: CONTRACEPTION
     Dosage: ONE QD PO
     Route: 048
     Dates: start: 20041001

REACTIONS (4)
  - MENORRHAGIA [None]
  - METRORRHAGIA [None]
  - MOOD ALTERED [None]
  - THERAPEUTIC RESPONSE UNEXPECTED WITH DRUG SUBSTITUTION [None]
